FAERS Safety Report 6686063-1 (Version None)
Quarter: 2010Q2

REPORT INFORMATION
  Report Type: 
  Country: None (occurrence: None)
  Receive Date: 20100414
  Receipt Date: 20100330
  Transmission Date: 20101027
  Serious: No
  Sender: FDA-Public Use
  Company Number: 2010030067

PATIENT
  Age: 70 Year
  Sex: Female

DRUGS (2)
  1. ONSOLIS [Suspect]
  2. PERCOCET [Concomitant]

REACTIONS (3)
  - DRUG INTOLERANCE [None]
  - DRUG PRESCRIBING ERROR [None]
  - INTERCEPTED DRUG DISPENSING ERROR [None]
